FAERS Safety Report 25631234 (Version 2)
Quarter: 2025Q3

REPORT INFORMATION
  Report Type: Spontaneous
  Country: EU (occurrence: EU)
  Receive Date: 20250801
  Receipt Date: 20250813
  Transmission Date: 20251021
  Serious: Yes (Disabling, Other)
  Sender: AUROBINDO
  Company Number: EU-AUROBINDO-AUR-APL-2025-037419

PATIENT
  Age: 40 Year
  Sex: Female

DRUGS (6)
  1. BILASTINE [Suspect]
     Active Substance: BILASTINE
     Indication: Influenza like illness
     Route: 048
  2. BILASTINE [Suspect]
     Active Substance: BILASTINE
     Dosage: 10 MILLIGRAM, ONCE A DAY
     Route: 065
  3. PREDNISOLONE [Suspect]
     Active Substance: PREDNISOLONE
     Indication: Influenza like illness
     Dosage: 20 MILLIGRAM, ONCE A DAY
     Route: 048
  4. TOZINAMERAN [Suspect]
     Active Substance: TOZINAMERAN
     Indication: Influenza like illness
     Route: 065
     Dates: start: 2021
  5. TOZINAMERAN [Suspect]
     Active Substance: TOZINAMERAN
     Indication: COVID-19 immunisation
  6. TELMISARTAN [Concomitant]
     Active Substance: TELMISARTAN
     Indication: Hypertension
     Dosage: 40 MILLIGRAM, ONCE A DAY
     Route: 065

REACTIONS (3)
  - Maculopathy [Unknown]
  - Intentional product misuse [Unknown]
  - Macular dystrophy congenital [Unknown]
